FAERS Safety Report 9493341 (Version 3)
Quarter: 2013Q4

REPORT INFORMATION
  Report Type: Report from Study
  Country: HU (occurrence: HU)
  Receive Date: 20130902
  Receipt Date: 20131230
  Transmission Date: 20140711
  Serious: Yes (Hospitalization)
  Sender: FDA-Public Use
  Company Number: HU-JNJFOC-20130816137

PATIENT
  Age: 63 Year
  Sex: Female

DRUGS (1)
  1. STELARA [Suspect]
     Indication: PSORIASIS
     Route: 058
     Dates: start: 20130110

REACTIONS (9)
  - Muscular weakness [Unknown]
  - Arthritis [Recovering/Resolving]
  - Gastritis [Recovering/Resolving]
  - Hepatitis [Recovering/Resolving]
  - Tracheitis [Recovering/Resolving]
  - Myositis [Recovering/Resolving]
  - Ill-defined disorder [Unknown]
  - Urinary tract infection [Unknown]
  - Weight decreased [Recovering/Resolving]
